FAERS Safety Report 5842861-5 (Version None)
Quarter: 2008Q3

REPORT INFORMATION
  Report Type: 
  Country: None (occurrence: None)
  Receive Date: 20080731
  Receipt Date: 20080407
  Transmission Date: 20090109
  Serious: No
  Sender: FDA-Public Use
  Company Number: US200802002184

PATIENT
  Age: 72 Year
  Sex: Female
  Weight: 110.9 kg

DRUGS (8)
  1. BYETTA [Suspect]
     Indication: TYPE 2 DIABETES MELLITUS
     Dosage: 5 UG, 2/D, SUBCUTANEOUS ; 10 UG, 2/D, SUBCUTANEOUS ; 10 UG, 2/D, SUBCUTANEOUS
     Route: 058
     Dates: start: 20080204, end: 20080304
  2. BYETTA [Suspect]
     Indication: TYPE 2 DIABETES MELLITUS
     Dosage: 5 UG, 2/D, SUBCUTANEOUS ; 10 UG, 2/D, SUBCUTANEOUS ; 10 UG, 2/D, SUBCUTANEOUS
     Route: 058
     Dates: start: 20080301
  3. BYETTA [Suspect]
     Indication: TYPE 2 DIABETES MELLITUS
     Dosage: 5 UG, 2/D, SUBCUTANEOUS ; 10 UG, 2/D, SUBCUTANEOUS ; 10 UG, 2/D, SUBCUTANEOUS
     Route: 058
     Dates: start: 20080305
  4. BYETTA [Suspect]
  5. BYETTA [Suspect]
  6. GLUCOTROL XL [Concomitant]
  7. AVANDIA [Concomitant]
  8. EXENATIDE PEN, DISPOSABLE DEVICE (EXENATIDE PEN)) PEN,DISPOSABLE [Concomitant]

REACTIONS (9)
  - BLOOD GLUCOSE FLUCTUATION [None]
  - CONSTIPATION [None]
  - DECREASED APPETITE [None]
  - DYSPEPSIA [None]
  - EARLY SATIETY [None]
  - FEELING COLD [None]
  - INJECTION SITE HAEMATOMA [None]
  - NAUSEA [None]
  - WEIGHT DECREASED [None]
